FAERS Safety Report 21689971 (Version 1)
Quarter: 2022Q4

REPORT INFORMATION
  Report Type: Spontaneous
  Country: CL (occurrence: CL)
  Receive Date: 20221206
  Receipt Date: 20221206
  Transmission Date: 20230113
  Serious: Yes (Other)
  Sender: FDA-Public Use
  Company Number: CL-TEVA-2022-CL-2831843

PATIENT
  Age: 59 Year
  Sex: Female
  Weight: 73 kg

DRUGS (2)
  1. BETAMETHASONE [Suspect]
     Active Substance: BETAMETHASONE
     Indication: Spinal column injury
     Dosage: 1 DOSAGE FORMS DAILY; SINGLE-DOSE
     Route: 030
     Dates: start: 20221114, end: 20221114
  2. BETAMETHASONE [Suspect]
     Active Substance: BETAMETHASONE
     Indication: Tendonitis

REACTIONS (16)
  - Altered state of consciousness [Recovering/Resolving]
  - Sudden onset of sleep [Recovering/Resolving]
  - Disturbance in attention [Recovering/Resolving]
  - Paraesthesia oral [Recovering/Resolving]
  - Head discomfort [Recovering/Resolving]
  - Ear discomfort [Recovering/Resolving]
  - Nightmare [Recovering/Resolving]
  - Abnormal dreams [Recovering/Resolving]
  - Somnolence [Recovering/Resolving]
  - Sleep disorder [Recovering/Resolving]
  - Fatigue [Recovering/Resolving]
  - Impaired work ability [Recovering/Resolving]
  - Disorientation [Recovering/Resolving]
  - Confusional state [Recovering/Resolving]
  - Memory impairment [Not Recovered/Not Resolved]
  - Blood pressure increased [Not Recovered/Not Resolved]

NARRATIVE: CASE EVENT DATE: 20221101
